FAERS Safety Report 6824829-5 (Version None)
Quarter: 2010Q3

REPORT INFORMATION
  Report Type: 
  Country: None (occurrence: None)
  Receive Date: 20100708
  Receipt Date: 20070103
  Transmission Date: 20110219
  Serious: No
  Sender: FDA-Public Use
  Company Number: US-PFIZER INC-2007001036

PATIENT
  Sex: Female

DRUGS (6)
  1. VARENICLINE [Suspect]
     Dates: start: 20061221
  2. NICOTROL [Suspect]
  3. LUVOX [Concomitant]
  4. MOBIC [Concomitant]
  5. CLONAZEPAM [Concomitant]
  6. VITAMIN E [Concomitant]

REACTIONS (3)
  - DRUG INEFFECTIVE [None]
  - DYSGEUSIA [None]
  - NAUSEA [None]
